FAERS Safety Report 6493814-8 (Version None)
Quarter: 2009Q4

REPORT INFORMATION
  Report Type: 
  Country: None (occurrence: None)
  Receive Date: 20091214
  Receipt Date: 20081104
  Transmission Date: 20100525
  Serious: No
  Sender: FDA-Public Use
  Company Number: US-BRISTOL-MYERS SQUIBB COMPANY-14397137

PATIENT
  Age: 53 Year
  Sex: Male

DRUGS (3)
  1. ABILIFY [Suspect]
     Indication: SCHIZOAFFECTIVE DISORDER
     Dosage: DECREASED DOSE TO 20 MG EVENT MORE PROUNCED AT 37.5 MG
  2. LAMICTAL [Concomitant]
  3. SEROQUEL [Concomitant]

REACTIONS (1)
  - PAINFUL ERECTION [None]
